FAERS Safety Report 8861685 (Version 1)
Quarter: 2012Q4

REPORT INFORMATION
  Report Type: Spontaneous
  Country: US (occurrence: None)
  Receive Date: 20121025
  Receipt Date: 20121025
  Transmission Date: 20130627
  Serious: Yes (Hospitalization)
  Sender: FDA-Public Use
  Company Number: None

PATIENT
  Sex: Male
  Weight: 66.5 kg

DRUGS (2)
  1. CISPLATIN [Suspect]
  2. ETOPOSIDE [Suspect]

REACTIONS (5)
  - Febrile neutropenia [None]
  - Abdominal pain [None]
  - Pneumoperitoneum [None]
  - Diarrhoea haemorrhagic [None]
  - White blood cell count decreased [None]
